FAERS Safety Report 22025838 (Version 1)
Quarter: 2023Q1

REPORT INFORMATION
  Report Type: Spontaneous
  Country: JP (occurrence: None)
  Receive Date: 20230223
  Receipt Date: 20230223
  Transmission Date: 20230417
  Serious: Yes (Hospitalization)
  Sender: FDA-Public Use
  Company Number: JP-ROCHE-3290085

PATIENT
  Sex: Male

DRUGS (11)
  1. VALGANCICLOVIR [Suspect]
     Active Substance: VALGANCICLOVIR
     Indication: Cytomegalovirus gastroenteritis
     Route: 048
  2. SIMPONI [Suspect]
     Active Substance: GOLIMUMAB
     Indication: Colitis ulcerative
     Dosage: 100 MILLIGRAM IN 1 DAY
     Route: 058
     Dates: start: 20210809, end: 20211201
  3. STELARA [Suspect]
     Active Substance: USTEKINUMAB
     Indication: Colitis ulcerative
     Dosage: 90MG IN 1 DAY
     Route: 041
     Dates: start: 202202, end: 202206
  4. PREDNISOLONE [Concomitant]
     Active Substance: PREDNISOLONE
  5. MESALAMINE [Concomitant]
     Active Substance: MESALAMINE
  6. FOSFOMYCIN SODIUM [Concomitant]
     Active Substance: FOSFOMYCIN SODIUM
  7. TACROLIMUS [Concomitant]
     Active Substance: TACROLIMUS
  8. VEDOLIZUMAB [Concomitant]
     Active Substance: VEDOLIZUMAB
  9. UPADACITINIB [Concomitant]
     Active Substance: UPADACITINIB
  10. PIPERACILLIN SODIUM [Concomitant]
     Active Substance: PIPERACILLIN SODIUM
  11. INFLIXIMAB [Concomitant]
     Active Substance: INFLIXIMAB

REACTIONS (3)
  - Colitis ulcerative [Recovered/Resolved]
  - Coronavirus infection [Recovered/Resolved]
  - Off label use [Unknown]

NARRATIVE: CASE EVENT DATE: 20211201
